FAERS Safety Report 18146856 (Version 1)
Quarter: 2020Q3

REPORT INFORMATION
  Report Type: Spontaneous
  Country: DK (occurrence: DK)
  Receive Date: 20200813
  Receipt Date: 20200813
  Transmission Date: 20201103
  Serious: Yes (Hospitalization)
  Sender: FDA-Public Use
  Company Number: DK-JNJFOC-20200808085

PATIENT
  Age: 27 Year
  Sex: Female

DRUGS (1)
  1. RISPERDAL [Suspect]
     Active Substance: RISPERIDONE
     Indication: PRODUCT USED FOR UNKNOWN INDICATION
     Dosage: 1 MG/ML
     Route: 048

REACTIONS (4)
  - Musculoskeletal stiffness [Recovered/Resolved]
  - Eye movement disorder [Recovered/Resolved]
  - Psychotic disorder [Not Recovered/Not Resolved]
  - Treatment noncompliance [Not Recovered/Not Resolved]
